FAERS Safety Report 5782043-9 (Version None)
Quarter: 2008Q2

REPORT INFORMATION
  Report Type: 
  Country: None (occurrence: None)
  Receive Date: 20080623
  Receipt Date: 20080611
  Transmission Date: 20081010
  Serious: Yes (Life-Threatening, Hospitalization)
  Sender: FDA-Public Use
  Company Number: GB-MERCK-0806GBR00049

PATIENT
  Age: 65 Year
  Sex: Male

DRUGS (8)
  1. ZOCOR [Suspect]
     Indication: MYOCARDIAL ISCHAEMIA
     Route: 048
     Dates: start: 20010101, end: 20080512
  2. FUSIDATE SODIUM [Suspect]
     Indication: ARTHRITIS BACTERIAL
     Route: 048
     Dates: start: 20080331, end: 20080512
  3. AMLODIPINE BESYLATE [Concomitant]
     Indication: HYPERTENSION
     Route: 065
  4. ATENOLOL [Concomitant]
     Indication: MYOCARDIAL ISCHAEMIA
     Route: 065
  5. BENDROFLUMETHIAZIDE [Concomitant]
     Indication: HYPERTENSION
     Route: 048
  6. DOXAZOSIN MESYLATE [Concomitant]
     Indication: HYPERTENSION
     Route: 048
  7. FLOXACILLIN [Concomitant]
     Indication: ARTHRITIS BACTERIAL
     Route: 048
     Dates: start: 20080331
  8. RAMIPRIL [Concomitant]
     Indication: MYOCARDIAL ISCHAEMIA
     Route: 048

REACTIONS (6)
  - ASTHENIA [None]
  - BLOOD CREATINE PHOSPHOKINASE INCREASED [None]
  - DRUG INTERACTION [None]
  - HYPOXIA [None]
  - MYALGIA [None]
  - RHABDOMYOLYSIS [None]
